FAERS Safety Report 9708243 (Version 1)
Quarter: 2013Q4

REPORT INFORMATION
  Report Type: Spontaneous
  Country: US (occurrence: US)
  Receive Date: 20131125
  Receipt Date: 20131125
  Transmission Date: 20140711
  Serious: No
  Sender: FDA-Public Use
  Company Number: US-TARO-2012P1067212

PATIENT
  Age: 90 Year
  Sex: Female
  Weight: 58.97 kg

DRUGS (8)
  1. CARBAMAZEPINE TABLETS USP 200 MG [Suspect]
     Route: 048
     Dates: start: 2008
  2. CARBAMAZEPINE TABLETS USP 200 MG [Suspect]
     Route: 048
  3. DIGOXIN [Concomitant]
  4. HYDROCHLORATE [Concomitant]
  5. METOPROLOL [Concomitant]
  6. ASPIRIN [Concomitant]
  7. LASIX [Concomitant]
  8. KLOR-CON [Concomitant]

REACTIONS (1)
  - Drug ineffective [Not Recovered/Not Resolved]
